FAERS Safety Report 10388446 (Version 1)
Quarter: 2014Q3

REPORT INFORMATION
  Report Type: Report from Study
  Country: BR (occurrence: BR)
  Receive Date: 20140815
  Receipt Date: 20140815
  Transmission Date: 20150326
  Serious: Yes (Other)
  Sender: FDA-Public Use
  Company Number: PHHY2014BR101783

PATIENT
  Sex: Male

DRUGS (3)
  1. NEOTIAPIM [Suspect]
     Active Substance: QUETIAPINE
     Dosage: 100 MG, UNK
  2. EXELON PATCH [Suspect]
     Active Substance: RIVASTIGMINE
     Dosage: 27MG/15CM2
  3. EXELON PATCH [Suspect]
     Active Substance: RIVASTIGMINE
     Indication: DEMENTIA ALZHEIMER^S TYPE
     Dosage: LOWER DOSES

REACTIONS (3)
  - Blood pressure increased [Unknown]
  - Cataract [Unknown]
  - Stress [Unknown]

NARRATIVE: CASE EVENT DATE: 20140811
